FAERS Safety Report 9282244 (Version 1)
Quarter: 2013Q2

REPORT INFORMATION
  Report Type: Spontaneous
  Country: US (occurrence: None)
  Receive Date: 20130509
  Receipt Date: 20130509
  Transmission Date: 20140414
  Serious: Yes (Death, Life-Threatening, Hospitalization, Other)
  Sender: FDA-Public Use
  Company Number: None

PATIENT
  Age: 66 Year
  Sex: Male
  Weight: 85.5 kg

DRUGS (1)
  1. DABIGATRAN 150MG BOEHRINGER INGELHEIM [Suspect]
     Indication: ATRIAL FIBRILLATION
     Dosage: 150MG  BID  PO
     Route: 048

REACTIONS (5)
  - Hypotension [None]
  - Abdominal pain [None]
  - International normalised ratio increased [None]
  - Intestinal ischaemia [None]
  - Wound haemorrhage [None]
